FAERS Safety Report 13648356 (Version 2)
Quarter: 2017Q2

REPORT INFORMATION
  Report Type: Spontaneous
  Country: US (occurrence: US)
  Receive Date: 20170613
  Receipt Date: 20170622
  Transmission Date: 20170830
  Serious: Yes (Death, Other)
  Sender: FDA-Public Use
  Company Number: US-HQ SPECIALTY-US-2017INT000210

PATIENT
  Age: 10 Day
  Sex: Male
  Weight: 3.2 kg

DRUGS (12)
  1. EPINEPHRINE. [Concomitant]
     Active Substance: EPINEPHRINE
     Dosage: 57.6 ?G/KG(0.4 ?G/KG, 1IN1 MIN)
     Route: 042
  2. AMIODARONE [Suspect]
     Active Substance: AMIODARONE
     Dosage: 5 MG/KG, UNK
     Route: 040
  3. MILRINONE [Concomitant]
     Active Substance: MILRINONE
     Indication: PRODUCT USED FOR UNKNOWN INDICATION
     Dosage: 720 ?G/KG(0.5?G/KG, 1 IN 1 MIN)
     Route: 042
  4. NITROGLYCERIN. [Concomitant]
     Active Substance: NITROGLYCERIN
     Indication: PRODUCT USED FOR UNKNOWN INDICATION
     Dosage: 288 ?G/KG (0.2?G/KG, 1 IN 1 MIN)
     Route: 042
  5. VASOPRESSIN. [Concomitant]
     Active Substance: VASOPRESSIN
     Dosage: 0.0006 U/KG/MIN
     Route: 065
  6. DEXMEDETOMIDINE HYDROCHLORIDE. [Suspect]
     Active Substance: DEXMEDETOMIDINE HYDROCHLORIDE
     Dosage: 36 ?G/KG (1.5 ?G/KG, 1 IN 1H)
     Route: 065
  7. DEXMEDETOMIDINE HYDROCHLORIDE. [Suspect]
     Active Substance: DEXMEDETOMIDINE HYDROCHLORIDE
     Indication: JUNCTIONAL ECTOPIC TACHYCARDIA
     Dosage: 24 ?G/KG (1 ?G/KG, 1 IN 1 H )
     Route: 065
  8. EPINEPHRINE. [Concomitant]
     Active Substance: EPINEPHRINE
     Indication: PRODUCT USED FOR UNKNOWN INDICATION
     Dosage: 100.8 ?G/KG (0.07 ?G/KG, 1 IN 1MIN)
     Route: 042
  9. VASOPRESSIN. [Concomitant]
     Active Substance: VASOPRESSIN
     Indication: PRODUCT USED FOR UNKNOWN INDICATION
     Dosage: 0.0003 U/KG/MIN
     Route: 065
  10. DEXMEDETOMIDINE HYDROCHLORIDE. [Suspect]
     Active Substance: DEXMEDETOMIDINE HYDROCHLORIDE
     Indication: SEDATION
     Dosage: 12 ?G/KG (0.5 ?G/KG, 1 IN 1H)
     Route: 042
  11. MAGNESIUM [Concomitant]
     Active Substance: MAGNESIUM
     Indication: PRODUCT USED FOR UNKNOWN INDICATION
     Dosage: 50 MG/KG, UNK
  12. AMIODARONE [Suspect]
     Active Substance: AMIODARONE
     Indication: ARRHYTHMIA SUPRAVENTRICULAR
     Dosage: 5 MG/KG, UNK
     Route: 065

REACTIONS (4)
  - Cardiac arrest neonatal [Fatal]
  - Pulseless electrical activity [Fatal]
  - Haemothorax [Fatal]
  - Drug administered to patient of inappropriate age [Unknown]
